FAERS Safety Report 4865438-7 (Version None)
Quarter: 2005Q4

REPORT INFORMATION
  Report Type: 
  Country: None (occurrence: None)
  Receive Date: 20051219
  Receipt Date: 20051201
  Transmission Date: 20060501
  Serious: Yes (Other)
  Sender: FDA-Public Use
  Company Number: DSA_27532_2005

PATIENT
  Age: 90 Year
  Sex: Female

DRUGS (3)
  1. MONO-TILDIEM [Suspect]
     Indication: HYPERTENSION
     Dosage: 200 MG Q DAY PO
     Route: 048
     Dates: start: 20040101
  2. FLUINDIONE [Concomitant]
  3. OTHER UNSPECIFIED DRUGS [Concomitant]

REACTIONS (1)
  - PEMPHIGOID [None]
